FAERS Safety Report 8472933 (Version 4)
Quarter: 2014Q1

REPORT INFORMATION
  Report Type: Report from Study
  Country: AT (occurrence: AT)
  Receive Date: 20120322
  Receipt Date: 20140109
  Transmission Date: 20141002
  Serious: Yes (Other)
  Sender: FDA-Public Use
  Company Number: AT-ROCHE-1018719

PATIENT
  Age: 56 Year
  Sex: Female
  Weight: 86 kg

DRUGS (11)
  1. VISMODEGIB [Suspect]
     Indication: BASAL CELL CARCINOMA
     Dosage: LAST DOSE PRIOR TO SAE 28 NOV 2011
     Route: 048
     Dates: start: 20111028
  2. MEXALEN [Suspect]
     Indication: NASOPHARYNGITIS
     Route: 065
     Dates: start: 20111123, end: 20111123
  3. MEXALEN [Suspect]
     Indication: ABDOMINAL PAIN
     Dosage: LAST DOSE PRIOR TO THE SAE 24/NOV/2011
     Route: 065
     Dates: start: 20111124, end: 20111124
  4. MEXALEN [Suspect]
     Indication: POST HERPETIC NEURALGIA
     Route: 065
     Dates: start: 20120229, end: 20120229
  5. MEXALEN [Suspect]
     Route: 065
     Dates: start: 20120301, end: 20120301
  6. MEXALEN [Suspect]
     Route: 065
     Dates: start: 20120303, end: 20120303
  7. EUTHYROX [Concomitant]
     Route: 065
     Dates: start: 20080115
  8. ENALAPRIL [Concomitant]
     Indication: HYPERTENSION
     Route: 065
  9. BETAMETHASONE VALERATE [Concomitant]
     Indication: HERPES ZOSTER
     Route: 061
     Dates: end: 20120223
  10. BETAMETHASONE VALERATE [Concomitant]
     Dosage: DAILY 1 TOPICAL
     Route: 061
     Dates: start: 20120611, end: 20120611
  11. CLIOQUINOL [Concomitant]
     Indication: HERPES ZOSTER
     Route: 061
     Dates: start: 20120223

REACTIONS (1)
  - Hepatic enzyme increased [Recovered/Resolved]
